FAERS Safety Report 4331194-4 (Version None)
Quarter: 2004Q1

REPORT INFORMATION
  Report Type: 
  Country: None (occurrence: None)
  Receive Date: 20040331
  Receipt Date: 20040315
  Transmission Date: 20041129
  Serious: Yes (Hospitalization)
  Sender: FDA-Public Use
  Company Number: 2004AP01774

PATIENT
  Age: 50 Year
  Sex: Male

DRUGS (2)
  1. IRESSA [Suspect]
     Indication: NON-SMALL CELL LUNG CANCER
     Dosage: 250 MG DAILY PO
     Route: 048
     Dates: start: 20040101, end: 20040303
  2. GASTER [Concomitant]

REACTIONS (2)
  - ERECTILE DYSFUNCTION [None]
  - HEPATIC FUNCTION ABNORMAL [None]
